FAERS Safety Report 26116755 (Version 1)
Quarter: 2025Q4

REPORT INFORMATION
  Report Type: Spontaneous
  Country: US (occurrence: US)
  Receive Date: 20251203
  Receipt Date: 20251203
  Transmission Date: 20260118
  Serious: No
  Sender: ROCHE
  Company Number: US-ROCHE-10000444540

PATIENT
  Sex: Male
  Weight: 99.7 kg

DRUGS (1)
  1. XOLAIR [Suspect]
     Active Substance: OMALIZUMAB
     Indication: Urticaria
     Dosage: INTO STOMACH
     Route: 058
     Dates: end: 202501

REACTIONS (3)
  - Product dispensing error [Unknown]
  - Off label use [Unknown]
  - No adverse event [Unknown]
